FAERS Safety Report 5549532-3 (Version None)
Quarter: 2007Q4

REPORT INFORMATION
  Report Type: 
  Country: None (occurrence: None)
  Receive Date: 20071212
  Receipt Date: 20071205
  Transmission Date: 20080405
  Serious: Yes (Other)
  Sender: FDA-Public Use
  Company Number: PHHO2007DE19987

PATIENT
  Sex: Female
  Weight: 101 kg

DRUGS (3)
  1. LETROZOLE [Suspect]
     Indication: BREAST CANCER
     Dosage: 2.5 MG, QD
     Route: 048
     Dates: start: 20061125, end: 20070719
  2. IMBUN [Concomitant]
  3. NATRIUM [Concomitant]

REACTIONS (3)
  - ABDOMINAL DISCOMFORT [None]
  - MALAISE [None]
  - MUSCLE SPASMS [None]
